FAERS Safety Report 4290918-5 (Version None)
Quarter: 2004Q1

REPORT INFORMATION
  Report Type: 
  Country: None (occurrence: None)
  Receive Date: 20040211
  Receipt Date: 20031013
  Transmission Date: 20041129
  Serious: No
  Sender: FDA-Public Use
  Company Number: US-GLAXOSMITHKLINE-A0430000A

PATIENT
  Age: 56 Year
  Sex: Female

DRUGS (4)
  1. PAXIL [Suspect]
     Dosage: 20MG PER DAY
     Route: 048
  2. LIPITOR [Concomitant]
  3. PREMARIN VAGINAL CREAM [Concomitant]
  4. GLUCOVANCE [Concomitant]

REACTIONS (1)
  - HYPERHIDROSIS [None]
